FAERS Safety Report 16962982 (Version 1)
Quarter: 2019Q4

REPORT INFORMATION
  Report Type: Spontaneous
  Country: IT (occurrence: IT)
  Receive Date: 20191025
  Receipt Date: 20191025
  Transmission Date: 20200122
  Serious: Yes (Other)
  Sender: FDA-Public Use
  Company Number: IT-MYLANLABS-2019M1100083

PATIENT
  Age: 41 Year
  Sex: Male

DRUGS (2)
  1. ARIPIPRAZOLE. [Suspect]
     Active Substance: ARIPIPRAZOLE
     Indication: MAJOR DEPRESSION
     Dosage: UNK
     Route: 048
     Dates: start: 20180301, end: 20190626
  2. CLOZAPINE. [Concomitant]
     Active Substance: CLOZAPINE
     Dosage: 100 MILLIGRAM
     Route: 048

REACTIONS (3)
  - Major depression [Unknown]
  - Drug ineffective [Unknown]
  - Off label use [Unknown]
